FAERS Safety Report 6081346-0 (Version None)
Quarter: 2009Q1

REPORT INFORMATION
  Report Type: 
  Country: None (occurrence: None)
  Receive Date: 20090218
  Receipt Date: 20090210
  Transmission Date: 20090719
  Serious: Yes (Other)
  Sender: FDA-Public Use
  Company Number: FR-JNJFOC-20090202393

PATIENT
  Age: 85 Year
  Sex: Male

DRUGS (4)
  1. OFLOCET [Suspect]
     Indication: TOOTH INFECTION
     Route: 048
  2. IRBESARTAN [Concomitant]
     Indication: HYPERTENSION
     Dosage: 300
     Route: 048
  3. VERAPAMIL [Concomitant]
     Dosage: 240
     Route: 048
  4. KARDEGIC [Concomitant]
     Indication: CORONARY ARTERY DISEASE
     Route: 048

REACTIONS (3)
  - OEDEMA PERIPHERAL [None]
  - PAIN [None]
  - TENDONITIS [None]
